FAERS Safety Report 9315472 (Version 1)
Quarter: 2013Q2

REPORT INFORMATION
  Report Type: Spontaneous
  Country: SE (occurrence: SE)
  Receive Date: 20130529
  Receipt Date: 20130529
  Transmission Date: 20140414
  Serious: Yes (Hospitalization)
  Sender: FDA-Public Use
  Company Number: SE-BAXTER-2013BAX019528

PATIENT
  Age: 67 Year
  Sex: Male

DRUGS (16)
  1. SENDOXAN 1000 MG PULVER TILL INJEKTIONSV?TSKA, L?SNING [Suspect]
     Indication: LYMPHOMA
     Route: 065
     Dates: start: 20121026
  2. VINCRISTINE [Suspect]
     Indication: LYMPHOMA
     Route: 065
     Dates: start: 20121012
  3. PREDNISOLONE [Suspect]
     Indication: LYMPHOMA
     Route: 065
     Dates: start: 20121026
  4. DOXORUBICIN [Suspect]
     Indication: LYMPHOMA
     Route: 065
     Dates: start: 20121026
  5. ALFUZOSIN [Concomitant]
     Indication: PRODUCT USED FOR UNKNOWN INDICATION
     Route: 065
  6. ACICLOVIR [Concomitant]
     Indication: PRODUCT USED FOR UNKNOWN INDICATION
     Route: 065
  7. OMEPRAZOLE [Concomitant]
     Indication: PRODUCT USED FOR UNKNOWN INDICATION
     Route: 065
  8. PANODIL [Concomitant]
     Indication: PRODUCT USED FOR UNKNOWN INDICATION
     Route: 065
  9. KALEORID [Concomitant]
     Indication: PRODUCT USED FOR UNKNOWN INDICATION
     Route: 065
  10. SULFAMETHOXAZOLE AND TRIMETHOPRIM [Concomitant]
     Indication: PRODUCT USED FOR UNKNOWN INDICATION
     Route: 065
  11. FRAGMIN [Concomitant]
     Indication: PRODUCT USED FOR UNKNOWN INDICATION
  12. ALLOPURINOL [Concomitant]
     Indication: PRODUCT USED FOR UNKNOWN INDICATION
     Route: 065
  13. MOVICOL [Concomitant]
     Indication: PRODUCT USED FOR UNKNOWN INDICATION
     Route: 065
  14. BETAPRED [Concomitant]
     Indication: PRODUCT USED FOR UNKNOWN INDICATION
     Route: 042
  15. TAVEGYL [Concomitant]
     Indication: PRODUCT USED FOR UNKNOWN INDICATION
     Route: 065
  16. GLUCOSE 5% [Concomitant]
     Indication: PRODUCT USED FOR UNKNOWN INDICATION
     Route: 042

REACTIONS (6)
  - Hypersensitivity [Recovered/Resolved]
  - Pyrexia [Recovered/Resolved]
  - Chills [Recovered/Resolved]
  - Malaise [Recovered/Resolved]
  - Respiratory disorder [Recovered/Resolved]
  - General physical health deterioration [Recovered/Resolved]
